FAERS Safety Report 5341193-1 (Version None)
Quarter: 2007Q2

REPORT INFORMATION
  Report Type: 
  Country: None (occurrence: None)
  Receive Date: 20070405
  Receipt Date: 20070226
  Transmission Date: 20071010
  Serious: No
  Sender: FDA-Public Use
  Company Number: US200611004729

PATIENT
  Age: 48 Year
  Sex: Female

DRUGS (5)
  1. CYMBALTA [Suspect]
     Indication: FIBROMYALGIA
     Dosage: SEE IMAGE
     Route: 048
     Dates: end: 20061001
  2. CYMBALTA [Suspect]
     Indication: FIBROMYALGIA
     Dosage: SEE IMAGE
     Route: 048
     Dates: start: 20061001
  3. XANAX /USA/ (ALPRAZOLAM) [Concomitant]
  4. KLONOPIN [Concomitant]
  5. HORMONES AND RELATED AGENTS [Concomitant]

REACTIONS (7)
  - ABDOMINAL PAIN UPPER [None]
  - DIVORCED [None]
  - HEADACHE [None]
  - MEMORY IMPAIRMENT [None]
  - MIDDLE INSOMNIA [None]
  - SOMNOLENCE [None]
  - STOMACH DISCOMFORT [None]
